FAERS Safety Report 23969648 (Version 1)
Quarter: 2024Q2

REPORT INFORMATION
  Report Type: Report from Study
  Country: US (occurrence: US)
  Receive Date: 20240613
  Receipt Date: 20240613
  Transmission Date: 20240716
  Serious: Yes (Hospitalization)
  Sender: FDA-Public Use
  Company Number: US-ABBVIE-5795072

PATIENT
  Sex: Male

DRUGS (1)
  1. VENCLEXTA [Suspect]
     Active Substance: VENETOCLAX
     Indication: Chronic lymphocytic leukaemia
     Dosage: FORM STRENGTH: 100 MILLIGRAM?TAKE 3 TABLETS BY MOUTH ONCE DAILY WITH FOOD AND A FULL GLASS OF WAT...
     Route: 048
     Dates: end: 202406

REACTIONS (3)
  - Muscle swelling [Unknown]
  - Haematoma muscle [Unknown]
  - Vomiting [Unknown]
